FAERS Safety Report 23383293 (Version 4)
Quarter: 2024Q2

REPORT INFORMATION
  Report Type: Report from Study
  Country: US (occurrence: US)
  Receive Date: 20240109
  Receipt Date: 20240410
  Transmission Date: 20240716
  Serious: Yes (Hospitalization, Other)
  Sender: FDA-Public Use
  Company Number: US-BRIAN CONNER SVP QUALITY AND CHIEF COMPLIANCE OFFICER-2024XER00002

PATIENT
  Age: 58 Year
  Sex: Female
  Weight: 98.866 kg

DRUGS (12)
  1. RECORLEV [Suspect]
     Active Substance: LEVOKETOCONAZOLE
     Indication: Cushing^s syndrome
     Dosage: 1 TABLET (150 MG), 1X/DAY
     Route: 048
     Dates: start: 20230126, end: 20231218
  2. CEFDINIR [Suspect]
     Active Substance: CEFDINIR
     Indication: Infectious pleural effusion
     Dosage: 300 MG, 2X/DAY
     Dates: start: 20240126
  3. CEFPROZIL [Suspect]
     Active Substance: CEFPROZIL
     Indication: Infectious pleural effusion
     Dosage: UNK
     Dates: start: 20240122
  4. ERGOCALCIFEROL [Concomitant]
     Active Substance: ERGOCALCIFEROL
     Dosage: 1 CAPSULES, 1X/WEEK
  5. DIETARY SUPPLEMENT [Concomitant]
     Active Substance: DIETARY SUPPLEMENT
  6. SYMBICORT [Concomitant]
     Active Substance: BUDESONIDE\FORMOTEROL FUMARATE DIHYDRATE
     Dosage: 2 PUFFS, 2X/DAY AS NEEDED
  7. CALCIUM CARBONATE [Concomitant]
     Active Substance: CALCIUM CARBONATE
     Dosage: 500 MG, 1X/DAY
     Route: 048
  8. GABAPENTIN [Concomitant]
     Active Substance: GABAPENTIN
     Dosage: 300 MG, 1X/DAY
     Route: 048
  9. LEVOTHYROXINE [Concomitant]
     Active Substance: LEVOTHYROXINE\LEVOTHYROXINE SODIUM
     Dosage: 1 TABLET, EVERY THURSDAY - TUESDAY
     Route: 048
  10. VITAMIN B12 [Concomitant]
     Active Substance: CYANOCOBALAMIN
     Dosage: 2 TABLETS, 1X/DAY
     Route: 048
  11. ZINCATE [Concomitant]
     Dosage: 1 CAPSULES, 1X/DAY
     Route: 048
  12. HYZAAR [Concomitant]
     Active Substance: HYDROCHLOROTHIAZIDE\LOSARTAN POTASSIUM
     Dosage: UNK
     Dates: end: 202401

REACTIONS (21)
  - Infectious pleural effusion [Recovering/Resolving]
  - Asthma [Recovering/Resolving]
  - Arthralgia [Recovering/Resolving]
  - Weight increased [Unknown]
  - Dental operation [Unknown]
  - Gastrooesophageal reflux disease [Recovering/Resolving]
  - Thrombocytosis [Recovering/Resolving]
  - Normocytic anaemia [Recovered/Resolved]
  - Leukocytosis [Recovering/Resolving]
  - Hyponatraemia [Recovered/Resolved]
  - Hypoalbuminaemia [Unknown]
  - Asthenia [Unknown]
  - Anxiety [Unknown]
  - Adrenal mass [Unknown]
  - Drug interaction [Recovered/Resolved]
  - Gastritis [Recovering/Resolving]
  - Joint swelling [Recovering/Resolving]
  - Diarrhoea [Recovered/Resolved]
  - Abdominal pain [Recovering/Resolving]
  - Nausea [Recovering/Resolving]
  - Hypokalaemia [Recovered/Resolved]

NARRATIVE: CASE EVENT DATE: 20231201
